FAERS Safety Report 5405497-6 (Version None)
Quarter: 2007Q3

REPORT INFORMATION
  Report Type: 
  Country: None (occurrence: None)
  Receive Date: 20070803
  Receipt Date: 20070725
  Transmission Date: 20080115
  Serious: Yes (Other)
  Sender: FDA-Public Use
  Company Number: CA-PFIZER INC-2007061321

PATIENT
  Age: 57 Year
  Sex: Male

DRUGS (18)
  1. CHAMPIX [Suspect]
     Indication: SMOKING CESSATION THERAPY
     Route: 048
  2. CRESTOR [Concomitant]
  3. CELEXA [Concomitant]
  4. AMIODARONE HCL [Concomitant]
  5. RESTORIL [Concomitant]
  6. NORVASC [Concomitant]
  7. BISOPROLOL FUMARATE [Concomitant]
  8. ZAROXOLYN [Concomitant]
  9. LASIX [Concomitant]
  10. ISOSORBIDE MONONITRATE [Concomitant]
  11. PANECTYL [Concomitant]
  12. FLEXERIL [Concomitant]
  13. LOSEC [Concomitant]
  14. ALTACE [Concomitant]
  15. MORPHINE SULFATE [Concomitant]
  16. ATROVENT [Concomitant]
     Dosage: TEXT:2 PUFFS 4 TIMES A DAY.
  17. SENOKOT [Concomitant]
  18. K-DUR 10 [Concomitant]

REACTIONS (3)
  - HYPERSENSITIVITY [None]
  - OEDEMA MOUTH [None]
  - SWELLING FACE [None]
